FAERS Safety Report 8646992 (Version 2)
Quarter: 2012Q4

REPORT INFORMATION
  Report Type: Spontaneous
  Country: JP (occurrence: None)
  Receive Date: 20120619
  Receipt Date: 20120830
  Transmission Date: 20130627
  Serious: Yes (Death, Hospitalization, Other)
  Sender: FDA-Public Use
  Company Number: NSR_00572_2012

PATIENT
  Age: 83 Year
  Sex: Female

DRUGS (4)
  1. ALLOPURINOL [Suspect]
     Indication: PRODUCT USED FOR UNKNOWN INDICATION
     Dosage: (DF)
     Dates: start: 20040917, end: 20041024
  2. NIFESLOW [Concomitant]
  3. LIPOBUCOL [Concomitant]
  4. CALFINA [Concomitant]

REACTIONS (16)
  - Drug reaction with eosinophilia and systemic symptoms [None]
  - Lip erosion [None]
  - Hepatic function abnormal [None]
  - Renal failure [None]
  - Sepsis [None]
  - Disseminated intravascular coagulation [None]
  - Multi-organ failure [None]
  - Human herpesvirus 6 infection [None]
  - Cytomegalovirus infection [None]
  - Bacterial infection [None]
  - Pulmonary haemorrhage [None]
  - Pulmonary oedema [None]
  - Nephrotic syndrome [None]
  - Phagocytosis [None]
  - Viral infection [None]
  - Drug level increased [None]
